FAERS Safety Report 7353555-1 (Version None)
Quarter: 2011Q1

REPORT INFORMATION
  Report Type: 
  Country: None (occurrence: None)
  Receive Date: 20110315
  Receipt Date: 20110311
  Transmission Date: 20110831
  Serious: Yes (Death)
  Sender: FDA-Public Use
  Company Number: US-ELI_LILLY_AND_COMPANY-US201103003725

PATIENT
  Sex: Female

DRUGS (9)
  1. SPIRIVA [Concomitant]
  2. GLUCAGON [Concomitant]
  3. AMBIEN [Concomitant]
  4. PRILOSEC [Concomitant]
  5. LEXAPRO [Concomitant]
  6. SYNTHROID [Concomitant]
  7. CYMBALTA [Suspect]
     Indication: MAJOR DEPRESSION
     Dosage: 30 MG, UNKNOWN
     Dates: start: 20110224
  8. SINGULAIR [Concomitant]
  9. HYZAAR [Concomitant]

REACTIONS (1)
  - DEATH [None]
